FAERS Safety Report 5915098-9 (Version None)
Quarter: 2008Q4

REPORT INFORMATION
  Report Type: 
  Country: None (occurrence: None)
  Receive Date: 20081010
  Receipt Date: 20080930
  Transmission Date: 20090506
  Serious: No
  Sender: FDA-Public Use
  Company Number: B0532320A

PATIENT
  Age: 60 Year
  Sex: Female

DRUGS (7)
  1. BACTROBAN [Suspect]
     Indication: RHINITIS
     Route: 045
     Dates: start: 20080725, end: 20080730
  2. LEVOCETIRIZINE [Concomitant]
  3. XYLOMETAZOLINE HYDROCHLORIDE [Concomitant]
  4. ACETAMINOPHEN [Concomitant]
  5. OMEPRAZOLE [Concomitant]
  6. CELECOXIB [Concomitant]
  7. NIMESULIDE [Concomitant]

REACTIONS (3)
  - INCORRECT DRUG DOSAGE FORM ADMINISTERED [None]
  - NASAL DISCOMFORT [None]
  - THROAT IRRITATION [None]
